FAERS Safety Report 10063131 (Version 1)
Quarter: 2014Q2

REPORT INFORMATION
  Report Type: Spontaneous
  Country: PE (occurrence: PE)
  Receive Date: 20140407
  Receipt Date: 20140407
  Transmission Date: 20141212
  Serious: Yes (Other)
  Sender: FDA-Public Use
  Company Number: PE-PFIZER INC-2014096703

PATIENT
  Age: 65 Year
  Sex: Female

DRUGS (2)
  1. XANAX XR [Suspect]
     Indication: ANXIETY
     Dosage: 2.5MG AT NOON, 5MG AT NIGHT
     Route: 048
  2. XANAX XR [Suspect]
     Indication: DEPRESSION

REACTIONS (5)
  - General physical health deterioration [Unknown]
  - Spinal cord disorder [Unknown]
  - White blood cell disorder [Unknown]
  - Dental operation [Unknown]
  - Somnolence [Unknown]
